FAERS Safety Report 8168579-4 (Version None)
Quarter: 2012Q1

REPORT INFORMATION
  Report Type: 
  Country: None (occurrence: None)
  Receive Date: 20120227
  Receipt Date: 20120220
  Transmission Date: 20120608
  Serious: Yes (Hospitalization, Other)
  Sender: FDA-Public Use
  Company Number: US-BAYER-2012-018513

PATIENT
  Age: 27 Year
  Sex: Male

DRUGS (1)
  1. BETASERON [Suspect]
     Indication: MULTIPLE SCLEROSIS
     Dosage: DAILY DOSE .25 MG
     Route: 058
     Dates: start: 20100801

REACTIONS (2)
  - VISUAL IMPAIRMENT [None]
  - OPTIC NERVE DISORDER [None]
